FAERS Safety Report 25795593 (Version 2)
Quarter: 2025Q3

REPORT INFORMATION
  Report Type: Spontaneous
  Country: CH (occurrence: CH)
  Receive Date: 20250912
  Receipt Date: 20250915
  Transmission Date: 20251020
  Serious: No
  Sender: TRAVERE THERAPEUTICS
  Company Number: CH-BEH-2025213117

PATIENT
  Sex: Male

DRUGS (1)
  1. FILSPARI [Suspect]
     Active Substance: SPARSENTAN
     Indication: IgA nephropathy
     Dosage: 400 MG, 1 TABLET QD
     Route: 065
     Dates: start: 20250403

REACTIONS (2)
  - Proteinuria [Unknown]
  - Hypertension [Unknown]

NARRATIVE: CASE EVENT DATE: 20250601
